FAERS Safety Report 8010006-1 (Version None)
Quarter: 2011Q4

REPORT INFORMATION
  Report Type: 
  Country: None (occurrence: None)
  Receive Date: 20111228
  Receipt Date: 20111214
  Transmission Date: 20120403
  Serious: Yes (Hospitalization, Other)
  Sender: FDA-Public Use
  Company Number: ES-ELI_LILLY_AND_COMPANY-ES201112003993

PATIENT
  Sex: Female
  Weight: 70 kg

DRUGS (5)
  1. FORTEO [Suspect]
     Indication: OSTEOPOROSIS
     Dosage: 20 UG, QD
     Route: 058
     Dates: start: 20101203, end: 20111016
  2. ACETAMINOPHEN [Concomitant]
     Indication: PAIN
     Dosage: UNK, EVERY 8 HRS
     Route: 048
  3. CALCIUM ACETATE [Concomitant]
     Indication: OSTEOPOROSIS
     Dosage: UNK, BID
     Route: 048
  4. PROFER [Concomitant]
     Indication: IRON DEFICIENCY ANAEMIA
     Dosage: UNK, BID
     Route: 048
  5. FOLIC ACID [Concomitant]
     Indication: ANAEMIA
     Dosage: UNK, 2/W
     Route: 048

REACTIONS (2)
  - CEREBROVASCULAR ACCIDENT [None]
  - HAEMOGLOBIN ABNORMAL [None]
